FAERS Safety Report 9840447 (Version 1)
Quarter: 2014Q1

REPORT INFORMATION
  Report Type: Report from Study
  Country: GB (occurrence: GB)
  Receive Date: 20140124
  Receipt Date: 20140124
  Transmission Date: 20141002
  Serious: Yes (Hospitalization)
  Sender: FDA-Public Use
  Company Number: GB-JNJFOC-20140108078

PATIENT
  Age: 68 Year
  Sex: Female
  Weight: 87 kg

DRUGS (6)
  1. USTEKINUMAB [Suspect]
     Indication: PSORIASIS
     Route: 058
     Dates: start: 20120829
  2. CO-CODAMOL [Concomitant]
     Route: 065
     Dates: start: 20110117
  3. AMOXICILLIN [Concomitant]
     Route: 065
     Dates: start: 20131128, end: 20131205
  4. NYSTATIN [Concomitant]
     Route: 065
     Dates: start: 20131031, end: 20131107
  5. CLARITHROMYCIN [Concomitant]
     Route: 065
     Dates: start: 20131128, end: 20131205
  6. PREDNISOLONE [Concomitant]
     Route: 065
     Dates: start: 20131128

REACTIONS (1)
  - Pneumonia [Recovered/Resolved]
